FAERS Safety Report 20042057 (Version 1)
Quarter: 2021Q4

REPORT INFORMATION
  Report Type: Other
  Country: None (occurrence: JP)
  Receive Date: 20211108
  Receipt Date: 20211108
  Transmission Date: 20220303
  Serious: Yes (Other)
  Sender: FDA-Public Use
  Company Number: JP-NATCO Pharma Limited-2121560

PATIENT
  Age: 58 Year
  Sex: Female

DRUGS (3)
  1. LETROZOLE [Suspect]
     Active Substance: LETROZOLE
  2. FULVESTRANT [Concomitant]
     Active Substance: FULVESTRANT
  3. IBRANCE [Concomitant]
     Active Substance: PALBOCICLIB

REACTIONS (6)
  - Hypercalcaemia [None]
  - Metastases to liver [None]
  - Red blood cell count decreased [None]
  - Thrombocytopenia [None]
  - Disease progression [None]
  - Condition aggravated [None]
